FAERS Safety Report 20969416 (Version 1)
Quarter: 2022Q2

REPORT INFORMATION
  Report Type: Spontaneous
  Country: IT (occurrence: IT)
  Receive Date: 20220616
  Receipt Date: 20220616
  Transmission Date: 20220720
  Serious: Yes (Death, Other)
  Sender: FDA-Public Use
  Company Number: None

PATIENT
  Age: 59 Year
  Sex: Male

DRUGS (1)
  1. HEPARIN SODIUM [Suspect]
     Active Substance: HEPARIN SODIUM
     Indication: Embolism arterial
     Dosage: 52000 IU, AS NEEDED
     Dates: start: 20220505, end: 20220505

REACTIONS (3)
  - Carotid artery occlusion [Fatal]
  - Drug ineffective [Fatal]
  - Ischaemia [Fatal]

NARRATIVE: CASE EVENT DATE: 20220505
